FAERS Safety Report 24100543 (Version 1)
Quarter: 2024Q3

REPORT INFORMATION
  Report Type: Spontaneous
  Country: GB (occurrence: GB)
  Receive Date: 20240717
  Receipt Date: 20240717
  Transmission Date: 20241016
  Serious: Yes (Hospitalization, Disabling, Other)
  Sender: CIPLA
  Company Number: GB-MHRA-MED-202407041053066220-FWYTH

PATIENT

DRUGS (1)
  1. FINASTERIDE [Suspect]
     Active Substance: FINASTERIDE
     Indication: Androgenetic alopecia
     Dosage: 1 MILLIGRAM, QD
     Route: 065
     Dates: start: 20231114, end: 20231118

REACTIONS (33)
  - Lipodystrophy acquired [Not Recovered/Not Resolved]
  - Tinnitus [Not Recovered/Not Resolved]
  - Vitreous floaters [Not Recovered/Not Resolved]
  - Memory impairment [Not Recovered/Not Resolved]
  - Weight decreased [Not Recovered/Not Resolved]
  - Asteatosis [Not Recovered/Not Resolved]
  - Alopecia [Not Recovered/Not Resolved]
  - Hirsutism [Not Recovered/Not Resolved]
  - Premature ageing [Not Recovered/Not Resolved]
  - Joint laxity [Not Recovered/Not Resolved]
  - Arthralgia [Not Recovered/Not Resolved]
  - Joint noise [Not Recovered/Not Resolved]
  - Hypotension [Not Recovered/Not Resolved]
  - Bradycardia [Not Recovered/Not Resolved]
  - Tachycardia [Recovered/Resolved]
  - Fatigue [Not Recovered/Not Resolved]
  - Anhedonia [Recovering/Resolving]
  - Brain fog [Not Recovered/Not Resolved]
  - Night blindness [Not Recovered/Not Resolved]
  - Hyperhidrosis [Not Recovered/Not Resolved]
  - Autonomic nervous system imbalance [Not Recovered/Not Resolved]
  - Varicose vein [Not Recovered/Not Resolved]
  - Hypoaesthesia [Not Recovered/Not Resolved]
  - Insomnia [Recovering/Resolving]
  - Depersonalisation/derealisation disorder [Recovered/Resolved with Sequelae]
  - Anorgasmia [Recovering/Resolving]
  - Aphantasia [Not Recovered/Not Resolved]
  - Constipation [Recovering/Resolving]
  - Suicidal ideation [Recovering/Resolving]
  - Premature ejaculation [Not Recovered/Not Resolved]
  - Depression [Recovered/Resolved with Sequelae]
  - Anxiety [Not Recovered/Not Resolved]
  - Erectile dysfunction [Recovered/Resolved with Sequelae]

NARRATIVE: CASE EVENT DATE: 20231101
